FAERS Safety Report 18981377 (Version 1)
Quarter: 2021Q1

REPORT INFORMATION
  Report Type: Spontaneous
  Country: US (occurrence: US)
  Receive Date: 20210308
  Receipt Date: 20210308
  Transmission Date: 20210420
  Serious: Yes (Other)
  Sender: FDA-Public Use
  Company Number: US-AMGEN-USASP2021033757

PATIENT
  Sex: Female
  Weight: 39.5 kg

DRUGS (2)
  1. MVASI [Suspect]
     Active Substance: BEVACIZUMAB-AWWB
     Dosage: 200 MILLIGRAM
     Route: 065
     Dates: start: 20210111
  2. MVASI [Suspect]
     Active Substance: BEVACIZUMAB-AWWB
     Indication: RECTAL CANCER
     Dosage: UNK
     Route: 065
     Dates: start: 20200821

REACTIONS (1)
  - Rectal haemorrhage [Unknown]
